FAERS Safety Report 21943985 (Version 1)
Quarter: 2023Q1

REPORT INFORMATION
  Report Type: Spontaneous
  Country: US (occurrence: US)
  Receive Date: 20230202
  Receipt Date: 20230202
  Transmission Date: 20230418
  Serious: Yes (Life-Threatening, Hospitalization, Other)
  Sender: FDA-Public Use
  Company Number: US-MLMSERVICE-2023011940508901

PATIENT
  Age: 67 Year
  Sex: Female

DRUGS (1)
  1. AMLODIPINE [Suspect]
     Active Substance: AMLODIPINE BESYLATE
     Dosage: CUMULATIVE DOSE: 150 MG.
     Route: 048

REACTIONS (4)
  - Intentional overdose [Unknown]
  - Mental disorder [Recovered/Resolved]
  - Distributive shock [Recovered/Resolved]
  - Suicide attempt [Unknown]
